FAERS Safety Report 4560963-0 (Version None)
Quarter: 2005Q1

REPORT INFORMATION
  Report Type: 
  Country: None (occurrence: None)
  Receive Date: 20050126
  Receipt Date: 20040331
  Transmission Date: 20050727
  Serious: No
  Sender: FDA-Public Use
  Company Number: US-BRISTOL-MYERS SQUIBB COMPANY-12547675

PATIENT
  Age: 50 Year
  Sex: Male

DRUGS (2)
  1. GLUCOPHAGE [Suspect]
     Indication: DIABETES MELLITUS
     Route: 048
     Dates: start: 20031210
  2. DIURETIC [Concomitant]

REACTIONS (2)
  - ERECTILE DYSFUNCTION [None]
  - HEPATIC PAIN [None]
